FAERS Safety Report 4507296-6 (Version None)
Quarter: 2004Q4

REPORT INFORMATION
  Report Type: 
  Country: None (occurrence: None)
  Receive Date: 20041025
  Receipt Date: 20030922
  Transmission Date: 20050328
  Serious: Yes (Other)
  Sender: FDA-Public Use
  Company Number: US-JNJFOC-20030601999

PATIENT
  Age: 61 Year
  Sex: Female
  Weight: 96.8883 kg

DRUGS (8)
  1. REMICADE [Suspect]
     Indication: RHEUMATOID ARTHRITIS
     Dosage: 3 MG/K, 1 IN 1 DAY, INTRAVENOUS
     Route: 042
     Dates: start: 20021108, end: 20021108
  2. REMICADE [Suspect]
     Indication: RHEUMATOID ARTHRITIS
     Dosage: 3 MG/K, 1 IN 1 DAY, INTRAVENOUS
     Route: 042
     Dates: start: 20030606, end: 20030606
  3. METHOTREXATE [Concomitant]
  4. ULTRAM [Concomitant]
  5. GLUCOTROL XL [Concomitant]
  6. NEURONTIN [Concomitant]
  7. GLUCOPHAGE [Concomitant]
  8. FOLIC ACID [Concomitant]

REACTIONS (1)
  - DYSPNOEA [None]
